FAERS Safety Report 25853447 (Version 3)
Quarter: 2025Q4

REPORT INFORMATION
  Report Type: Spontaneous
  Country: JP (occurrence: JP)
  Receive Date: 20250926
  Receipt Date: 20251104
  Transmission Date: 20260119
  Serious: Yes (Death, Life-Threatening, Hospitalization)
  Sender: AMGEN
  Company Number: JP-AMGEN-JPNSP2025063305

PATIENT
  Age: 56 Year
  Sex: Female
  Weight: 47 kg

DRUGS (7)
  1. TEPEZZA [Suspect]
     Active Substance: TEPROTUMUMAB-TRBW
     Indication: Endocrine ophthalmopathy
     Dosage: 10 MILLIGRAM/KILOGRAM, Q3WK (INTRAVENOUS DRIP INFUSION, FIRST INFUSION)
     Route: 040
     Dates: start: 20250214
  2. TEPEZZA [Suspect]
     Active Substance: TEPROTUMUMAB-TRBW
     Dosage: 20 MILLIGRAM/KILOGRAM, Q3WK (INTRAVENOUS DRIP INFUSION)
     Route: 040
     Dates: start: 2025
  3. TEPEZZA [Suspect]
     Active Substance: TEPROTUMUMAB-TRBW
     Dosage: 20 MILLIGRAM/KILOGRAM, Q3WK (THIRD DOSE)
     Route: 040
     Dates: start: 20250327
  4. TEPEZZA [Suspect]
     Active Substance: TEPROTUMUMAB-TRBW
     Dosage: 20 MILLIGRAM/KILOGRAM, Q3WK (FOURTH DOSE)
     Route: 040
     Dates: start: 2025
  5. TEPEZZA [Suspect]
     Active Substance: TEPROTUMUMAB-TRBW
     Dosage: 20 MILLIGRAM/KILOGRAM, Q3WK
     Route: 040
     Dates: start: 20250710, end: 20250710
  6. INSULIN GLARGINE [Concomitant]
     Active Substance: INSULIN GLARGINE
     Dosage: UNK UNK, QD
  7. TRULICITY [Concomitant]
     Active Substance: DULAGLUTIDE
     Dosage: UNK UNK, QWK

REACTIONS (17)
  - Hyperglycaemia [Recovering/Resolving]
  - Sudden death [Fatal]
  - Blood sodium decreased [Unknown]
  - Blood chloride decreased [Unknown]
  - Blood creatine phosphokinase increased [Unknown]
  - Foetal haemoglobin increased [Unknown]
  - Thyroxine free increased [Unknown]
  - Blood thyroid stimulating hormone increased [Unknown]
  - Blood thyroid stimulating hormone increased [Unknown]
  - Glycosylated haemoglobin increased [Unknown]
  - Blood insulin increased [Unknown]
  - Specific gravity urine increased [Unknown]
  - Urine albumin/creatinine ratio increased [Unknown]
  - Blood urea increased [Unknown]
  - Blood creatine phosphokinase increased [Unknown]
  - Glycosylated haemoglobin increased [Unknown]
  - Blood triglycerides increased [Unknown]

NARRATIVE: CASE EVENT DATE: 20250327
